FAERS Safety Report 20918659 (Version 1)
Quarter: 2022Q2

REPORT INFORMATION
  Report Type: Spontaneous
  Country: JP (occurrence: JP)
  Receive Date: 20220606
  Receipt Date: 20220606
  Transmission Date: 20220721
  Serious: Yes (Hospitalization)
  Sender: FDA-Public Use
  Company Number: JP-STRIDES ARCOLAB LIMITED-2022SP006602

PATIENT
  Age: 69 Year
  Sex: Female

DRUGS (3)
  1. DIAZEPAM [Interacting]
     Active Substance: DIAZEPAM
     Indication: Anxiety
     Dosage: 8 MILLIGRAM
     Route: 048
  2. GEFITINIB [Interacting]
     Active Substance: GEFITINIB
     Indication: Lung adenocarcinoma stage IV
     Dosage: 250 MILLIGRAM PER DAY, EVERY DAY FOR 1 YEAR
     Route: 048
  3. GEFITINIB [Interacting]
     Active Substance: GEFITINIB
     Indication: EGFR gene mutation
     Dosage: 1500 MILLIGRAM PER DAY
     Route: 048

REACTIONS (3)
  - Drug interaction [Recovered/Resolved]
  - Rhabdomyolysis [Recovered/Resolved]
  - Renal impairment [Recovered/Resolved]
